FAERS Safety Report 4555313-X (Version None)
Quarter: 2004Q4

REPORT INFORMATION
  Report Type: 
  Country: None (occurrence: None)
  Receive Date: 20041227
  Receipt Date: 20040116
  Transmission Date: 20050328
  Serious: Yes (Other)
  Sender: FDA-Public Use
  Company Number: US-JNJFOC-20040104134

PATIENT
  Age: 65 Year
  Sex: Female
  Weight: 80.5588 kg

DRUGS (17)
  1. REOPRO [Suspect]
     Indication: CORONARY ARTERY DISEASE
     Dosage: 10 ML, INTRAVENOUS
     Route: 042
     Dates: start: 20080418
  2. PROVERA [Concomitant]
  3. ESTRADIOL [Concomitant]
  4. ZANTAC [Concomitant]
  5. NTG (GLYCERYL TRINITRATE) [Concomitant]
  6. NORVASC [Concomitant]
  7. ZOCOR [Concomitant]
  8. ACETYLSALICYLIC ACID SRT [Concomitant]
  9. FLONASE [Concomitant]
  10. HYDROCHLOROTHIAZIDE [Concomitant]
  11. PERCOCET [Concomitant]
  12. NEURONTIN [Concomitant]
  13. PLAVIX [Concomitant]
  14. PROTENIX (ALL OTHER THERAPEUTIC PRODUCTS) [Concomitant]
  15. FOLTX (ALL OTHER THERAPEUTIC PRODUCTS) [Concomitant]
  16. ZYRTEC [Concomitant]
  17. XANAX [Concomitant]

REACTIONS (1)
  - THROMBOCYTOPENIA [None]
